FAERS Safety Report 10700773 (Version 1)
Quarter: 2015Q1

REPORT INFORMATION
  Report Type: Spontaneous
  Country: JP (occurrence: JP)
  Receive Date: 20150109
  Receipt Date: 20150109
  Transmission Date: 20150721
  Serious: Yes (Other)
  Sender: FDA-Public Use
  Company Number: JP-009507513-1501JPN002559

PATIENT
  Age: 52 Year
  Sex: Female

DRUGS (3)
  1. PEGINTRON [Suspect]
     Active Substance: PEGINTERFERON ALFA-2B
     Dosage: 100 MICROGRAM, UNK
     Route: 058
  2. REBETOL [Suspect]
     Active Substance: RIBAVIRIN
     Dosage: 300 MG, UNK
     Route: 048
  3. REBETOL [Suspect]
     Active Substance: RIBAVIRIN
     Dosage: 600 MG 3 CAPSULES A DAY, DIVIDED DOSE FREQUENCY UNKNOWN
     Route: 048

REACTIONS (1)
  - Cytopenia [Recovered/Resolved]

NARRATIVE: CASE EVENT DATE: 2014
